FAERS Safety Report 4699219-4 (Version None)
Quarter: 2005Q2

REPORT INFORMATION
  Report Type: 
  Country: None (occurrence: None)
  Receive Date: 20050624
  Receipt Date: 20041014
  Transmission Date: 20051028
  Serious: Yes (Hospitalization, Disabling)
  Sender: FDA-Public Use
  Company Number: US-MERCK-0410USA02357

PATIENT
  Age: 60 Year
  Sex: Female
  Weight: 55 kg

DRUGS (7)
  1. VIOXX [Suspect]
     Indication: OSTEOARTHRITIS
     Route: 048
     Dates: start: 20020301, end: 20030105
  2. VIOXX [Suspect]
     Indication: INTERVERTEBRAL DISC DEGENERATION
     Route: 048
     Dates: start: 20020301, end: 20030105
  3. PREMARIN [Concomitant]
     Route: 065
     Dates: start: 19920101, end: 20030101
  4. PROZAC [Concomitant]
     Indication: DEPRESSION
     Route: 065
     Dates: start: 19990101
  5. GUAIFENESIN DM [Concomitant]
     Route: 065
  6. SEREVENT [Concomitant]
     Route: 065
  7. PULMICORT [Concomitant]
     Route: 065

REACTIONS (19)
  - ABDOMINAL DISCOMFORT [None]
  - ADVERSE DRUG REACTION [None]
  - BRONCHIECTASIS [None]
  - CAROTID ARTERY STENOSIS [None]
  - CEREBROVASCULAR ACCIDENT [None]
  - COUGH [None]
  - DEPRESSION [None]
  - HYPERSENSITIVITY [None]
  - HYPERTENSION [None]
  - MIGRAINE WITH AURA [None]
  - MITRAL VALVE INCOMPETENCE [None]
  - NAUSEA [None]
  - PNEUMONIA [None]
  - PNEUMONITIS [None]
  - RED BLOOD CELL SEDIMENTATION RATE INCREASED [None]
  - RESPIRATORY TRACT INFECTION [None]
  - TRANSIENT ISCHAEMIC ATTACK [None]
  - TRICUSPID VALVE INCOMPETENCE [None]
  - VOMITING [None]
